APPROVED DRUG PRODUCT: AMANTADINE HYDROCHLORIDE
Active Ingredient: AMANTADINE HYDROCHLORIDE
Strength: EQ 68.5MG BASE
Dosage Form/Route: CAPSULE, EXTENDED RELEASE;ORAL
Application: A214897 | Product #001
Applicant: ZYDUS WORLDWIDE DMCC
Approved: Aug 26, 2024 | RLD: No | RS: No | Type: DISCN